FAERS Safety Report 24295720 (Version 1)
Quarter: 2024Q3

REPORT INFORMATION
  Report Type: Spontaneous
  Country: CN (occurrence: CN)
  Receive Date: 20240908
  Receipt Date: 20240908
  Transmission Date: 20241017
  Serious: Yes (Other)
  Sender: BEIGENE
  Company Number: CN-BEIGENE-BGN-2024-013731

PATIENT

DRUGS (6)
  1. TISLELIZUMAB [Suspect]
     Active Substance: TISLELIZUMAB
     Indication: Oesophageal squamous cell carcinoma
     Dosage: 200 MILLIGRAM, Q3WK
     Route: 041
     Dates: start: 20240713
  2. TISLELIZUMAB [Suspect]
     Active Substance: TISLELIZUMAB
     Indication: Oesophageal squamous cell carcinoma metastatic
     Dosage: 200 MILLIGRAM, Q3WK
     Route: 041
     Dates: start: 20240806
  3. CARBOPLATIN [Suspect]
     Active Substance: CARBOPLATIN
     Indication: Oesophageal squamous cell carcinoma
     Dosage: 400 MILLIGRAM, Q3WK
     Route: 041
     Dates: start: 20240713
  4. CARBOPLATIN [Suspect]
     Active Substance: CARBOPLATIN
     Indication: Oesophageal squamous cell carcinoma metastatic
     Dosage: 400 MILLIGRAM, Q3WK
     Route: 041
     Dates: start: 20240806
  5. PACLITAXEL [Suspect]
     Active Substance: PACLITAXEL
     Indication: Oesophageal squamous cell carcinoma
     Dosage: 400 MILLIGRAM, Q3WK
     Route: 041
     Dates: start: 20240713
  6. PACLITAXEL [Suspect]
     Active Substance: PACLITAXEL
     Indication: Oesophageal squamous cell carcinoma metastatic
     Dosage: 400 MILLIGRAM, Q3WK
     Route: 041
     Dates: start: 20240806

REACTIONS (1)
  - Myelosuppression [Recovering/Resolving]

NARRATIVE: CASE EVENT DATE: 20240815
